FAERS Safety Report 4842883-7 (Version None)
Quarter: 2005Q4

REPORT INFORMATION
  Report Type: 
  Country: None (occurrence: None)
  Receive Date: 20051201
  Receipt Date: 20051114
  Transmission Date: 20060501
  Serious: Yes (Other)
  Sender: FDA-Public Use
  Company Number: PHEH2005US12497

PATIENT
  Age: 24 Year
  Sex: Female
  Weight: 57.142 kg

DRUGS (1)
  1. ZELNORM [Suspect]
     Indication: IRRITABLE BOWEL SYNDROME
     Dosage: 6 MG, BID
     Route: 048
     Dates: start: 20050919, end: 20051110

REACTIONS (2)
  - DRUG INEFFECTIVE [None]
  - RECTAL HAEMORRHAGE [None]
